FAERS Safety Report 24933331 (Version 1)
Quarter: 2025Q1

REPORT INFORMATION
  Report Type: Spontaneous
  Country: US (occurrence: US)
  Receive Date: 20250206
  Receipt Date: 20250206
  Transmission Date: 20250409
  Serious: No
  Sender: ALKEM
  Company Number: US-ALKEM LABORATORIES LIMITED-US-ALKEM-2024-05500

PATIENT

DRUGS (2)
  1. GABAPENTIN [Suspect]
     Active Substance: GABAPENTIN
     Indication: Product used for unknown indication
     Route: 048
  2. TIZANIDINE [Suspect]
     Active Substance: TIZANIDINE
     Indication: Product used for unknown indication
     Route: 048

REACTIONS (9)
  - Binocular eye movement disorder [Unknown]
  - Balance disorder [Unknown]
  - Eye movement disorder [Unknown]
  - Pupillary reflex impaired [Unknown]
  - Disturbance in attention [Unknown]
  - Road traffic accident [Unknown]
  - Coordination abnormal [Unknown]
  - Dizziness [Unknown]
  - Tremor [Unknown]
